FAERS Safety Report 19970846 (Version 1)
Quarter: 2021Q4

REPORT INFORMATION
  Report Type: Spontaneous
  Country: RU (occurrence: RU)
  Receive Date: 20211020
  Receipt Date: 20211020
  Transmission Date: 20220303
  Serious: Yes (Other)
  Sender: FDA-Public Use
  Company Number: RU-TEVA-2021-RU-1966426

PATIENT
  Age: 11 Year

DRUGS (2)
  1. ETOPOSIDE [Suspect]
     Active Substance: ETOPOSIDE
     Indication: Ependymoma
     Dosage: 25 COURSES
     Route: 065
     Dates: start: 2015, end: 2017
  2. TEMOZOLOMIDE [Suspect]
     Active Substance: TEMOZOLOMIDE
     Indication: Ependymoma
     Dosage: 25 COURSES
     Route: 065
     Dates: start: 2015, end: 2017

REACTIONS (1)
  - Acute myeloid leukaemia [Unknown]
